FAERS Safety Report 4422288-3 (Version None)
Quarter: 2004Q3

REPORT INFORMATION
  Report Type: 
  Country: None (occurrence: None)
  Receive Date: 20040713
  Receipt Date: 20030604
  Transmission Date: 20050211
  Serious: Yes (Life-Threatening)
  Sender: FDA-Public Use
  Company Number: PROG00203001507

PATIENT
  Sex: Female

DRUGS (3)
  1. PROGESTERONE [Suspect]
     Indication: COMPLICATION OF PREGNANCY
     Dosage: 600 MG DAILY PO
     Route: 048
  2. PROGESTERONE [Suspect]
     Indication: PREGNANCY
     Dosage: 600 MG DAILY PO
     Route: 048
  3. ADEPAL (LEVONORGESTREL W/ETHINYLESTRADIOL) [Concomitant]

REACTIONS (2)
  - BREAST CANCER STAGE I [None]
  - BREAST CANCER STAGE III [None]
